FAERS Safety Report 8228199-X (Version None)
Quarter: 2012Q1

REPORT INFORMATION
  Report Type: 
  Country: None (occurrence: None)
  Receive Date: 20120322
  Receipt Date: 20111109
  Transmission Date: 20120608
  Serious: No
  Sender: FDA-Public Use
  Company Number: US-BAUSCH-2011BL007915

PATIENT
  Age: 70 Year
  Sex: Female

DRUGS (2)
  1. CROMOLYN SODIUM [Suspect]
     Route: 047
     Dates: start: 20111001, end: 20111107
  2. CROMOLYN SODIUM [Suspect]
     Indication: EYELID DISORDER
     Route: 047
     Dates: start: 20110119, end: 20110301

REACTIONS (2)
  - DRUG INEFFECTIVE [None]
  - INCORRECT STORAGE OF DRUG [None]
